FAERS Safety Report 15428093 (Version 1)
Quarter: 2018Q3

REPORT INFORMATION
  Report Type: Spontaneous
  Country: FR (occurrence: FR)
  Receive Date: 20180926
  Receipt Date: 20180926
  Transmission Date: 20181010
  Serious: Yes (Hospitalization)
  Sender: FDA-Public Use
  Company Number: FR-SUN PHARMACEUTICAL INDUSTRIES LTD-2018RR-185388

PATIENT
  Age: 43 Year
  Sex: Male

DRUGS (3)
  1. DIAZEPAM. [Suspect]
     Active Substance: DIAZEPAM
     Indication: PRODUCT USED FOR UNKNOWN INDICATION
     Dosage: UNK ()
     Route: 065
  2. ZOPICLONE [Suspect]
     Active Substance: ZOPICLONE
     Indication: PRODUCT USED FOR UNKNOWN INDICATION
     Dosage: UNK ()
     Route: 065
  3. QUETIAPINE. [Suspect]
     Active Substance: QUETIAPINE
     Indication: PRODUCT USED FOR UNKNOWN INDICATION
     Dosage: UNK ()
     Route: 065

REACTIONS (8)
  - Intentional overdose [Recovered/Resolved]
  - Confusional state [Recovered/Resolved]
  - Gamma-glutamyltransferase increased [Unknown]
  - Toxicity to various agents [Recovering/Resolving]
  - Ataxia [Recovered/Resolved]
  - Altered state of consciousness [Unknown]
  - Nystagmus [Recovered/Resolved]
  - Agitation [Recovered/Resolved]
